FAERS Safety Report 5474955-0 (Version None)
Quarter: 2007Q4

REPORT INFORMATION
  Report Type: 
  Country: None (occurrence: None)
  Receive Date: 20071002
  Receipt Date: 20070921
  Transmission Date: 20080405
  Serious: Yes (Hospitalization, Other)
  Sender: FDA-Public Use
  Company Number: US-ROCHE-510578

PATIENT
  Age: 71 Year
  Sex: Female

DRUGS (6)
  1. XELODA [Suspect]
     Route: 065
     Dates: start: 20070213, end: 20070201
  2. ANTIDIARRHOEAL NOS [Suspect]
     Route: 065
     Dates: start: 20070201
  3. CONTRAST DYE [Suspect]
     Route: 065
  4. CIPRO [Suspect]
     Indication: DRUG USE FOR UNKNOWN INDICATION
     Route: 065
  5. ALTACE [Concomitant]
     Indication: HYPERTENSION
  6. ATENOLOL [Concomitant]
     Indication: HYPERTENSION

REACTIONS (11)
  - BLOOD PRESSURE INCREASED [None]
  - COLITIS [None]
  - CONVULSION [None]
  - GASTROINTESTINAL OEDEMA [None]
  - HYPERTENSIVE ENCEPHALOPATHY [None]
  - INTESTINAL OBSTRUCTION [None]
  - PERITONEAL ADHESIONS DIVISION [None]
  - RASH [None]
  - RENAL FAILURE ACUTE [None]
  - SENSATION OF HEAVINESS [None]
  - VISUAL DISTURBANCE [None]
